FAERS Safety Report 25437746 (Version 3)
Quarter: 2025Q3

REPORT INFORMATION
  Report Type: Report from Study
  Country: EU (occurrence: EU)
  Receive Date: 20250616
  Receipt Date: 20250903
  Transmission Date: 20251020
  Serious: Yes (Hospitalization)
  Sender: EMD SERONO INC
  Company Number: EU-Merck Healthcare KGaA-2025029620

PATIENT
  Age: 7 Year
  Sex: Female
  Weight: 17 kg

DRUGS (2)
  1. SAIZEN [Suspect]
     Active Substance: SOMATROPIN
     Indication: Short stature
     Dosage: LAST INJECTED SAIZEN DOSAGE: (POSSIBLY 0.3 MG, UNFORTUNATELY FORGOTTEN).
     Dates: start: 20220304, end: 202307
  2. SAIZEN [Suspect]
     Active Substance: SOMATROPIN
     Indication: Small for dates baby

REACTIONS (1)
  - Osteonecrosis [Not Recovered/Not Resolved]

NARRATIVE: CASE EVENT DATE: 20230701
